FAERS Safety Report 4544676-7 (Version None)
Quarter: 2004Q4

REPORT INFORMATION
  Report Type: 
  Country: None (occurrence: None)
  Receive Date: 20041230
  Receipt Date: 20041217
  Transmission Date: 20050328
  Serious: Yes (Hospitalization)
  Sender: FDA-Public Use
  Company Number: 2004UW25699

PATIENT
  Age: 50 Year
  Sex: Male

DRUGS (13)
  1. CRESTOR [Suspect]
     Dosage: 20 MG (?)
     Dates: start: 20040608, end: 20040709
  2. ZOCOR [Concomitant]
  3. LAMISIL [Concomitant]
  4. LODINE [Concomitant]
  5. ZOMIG-ZMT [Concomitant]
  6. BEXTRA [Concomitant]
  7. VIOXX [Concomitant]
  8. BUTALBITAL W/ ASPIRIN + CAFFEINE [Concomitant]
  9. BIAXIN XL [Concomitant]
  10. ALBUTEROL [Concomitant]
  11. BUTALBITAL COMPOUND [Concomitant]
  12. SEREVENT [Concomitant]
  13. FLOVENT [Concomitant]

REACTIONS (5)
  - ASTHENIA [None]
  - CHEST PAIN [None]
  - MEDICATION ERROR [None]
  - PALPITATIONS [None]
  - RHABDOMYOLYSIS [None]
